FAERS Safety Report 4332150-2 (Version None)
Quarter: 2004Q1

REPORT INFORMATION
  Report Type: 
  Country: None (occurrence: None)
  Receive Date: 20040331
  Receipt Date: 20040318
  Transmission Date: 20041129
  Serious: Yes (Hospitalization)
  Sender: FDA-Public Use
  Company Number: DE-SHR-03-017554

PATIENT
  Age: 36 Year
  Sex: Female
  Weight: 62 kg

DRUGS (2)
  1. MIRENA [Suspect]
     Indication: CONTRACEPTION
     Dosage: 20 MG/D, CONT, INTRA-UTERINE
     Route: 015
     Dates: start: 20030310, end: 20031213
  2. LEVOTHYROXINE SODIUM [Concomitant]

REACTIONS (9)
  - BLEPHARITIS [None]
  - CONJUNCTIVAL HYPERAEMIA [None]
  - DERMATITIS ATOPIC [None]
  - EYE SWELLING [None]
  - FUNGAL INFECTION [None]
  - HYPERSENSITIVITY [None]
  - NAIL PSORIASIS [None]
  - PITYRIASIS [None]
  - SKIN HYPOPIGMENTATION [None]
